FAERS Safety Report 19490773 (Version 2)
Quarter: 2021Q3

REPORT INFORMATION
  Report Type: Report from Study
  Country: CA (occurrence: CA)
  Receive Date: 20210705
  Receipt Date: 20210707
  Transmission Date: 20211014
  Serious: Yes (Other)
  Sender: FDA-Public Use
  Company Number: CA-JNJFOC-20210664684

PATIENT
  Age: 6 Year
  Sex: Female

DRUGS (1)
  1. REMICADE [Suspect]
     Active Substance: INFLIXIMAB
     Indication: CROHN^S DISEASE
     Dosage: 11?JUN?2020 THE PATIENT RECEIVED REMICADE INJECTION.
     Route: 042
     Dates: start: 20180701, end: 20210630

REACTIONS (6)
  - Drug ineffective [Unknown]
  - Intestinal ulcer [Unknown]
  - Product use issue [Unknown]
  - Rectal haemorrhage [Not Recovered/Not Resolved]
  - Erythema [Unknown]
  - Off label use [Unknown]

NARRATIVE: CASE EVENT DATE: 20180701
